FAERS Safety Report 5646526-4 (Version None)
Quarter: 2008Q1

REPORT INFORMATION
  Report Type: 
  Country: None (occurrence: None)
  Receive Date: 20080303
  Receipt Date: 20080225
  Transmission Date: 20080703
  Serious: Yes (Life-Threatening, Hospitalization, Other)
  Sender: FDA-Public Use
  Company Number: PHHO2008DE00520

PATIENT
  Age: 16 Year
  Sex: Female
  Weight: 69 kg

DRUGS (7)
  1. IMATINIB [Suspect]
     Indication: ACUTE LYMPHOCYTIC LEUKAEMIA
     Dosage: 530 MG, QD
     Route: 048
     Dates: end: 20071229
  2. ASPARAGINE [Concomitant]
  3. DEXAMETHASONE TAB [Concomitant]
  4. VINCRISTINE [Concomitant]
  5. CYTARABINE [Suspect]
  6. METHOTREXATE [Suspect]
  7. CYCLOPHOSPHAMIDE [Suspect]

REACTIONS (4)
  - ATELECTASIS [None]
  - NEUTROPENIA [None]
  - PERICARDIAL EFFUSION [None]
  - SEPTIC SHOCK [None]
